FAERS Safety Report 9371635 (Version 1)
Quarter: 2013Q2

REPORT INFORMATION
  Report Type: Spontaneous
  Country: FR (occurrence: FR)
  Receive Date: 20130627
  Receipt Date: 20130627
  Transmission Date: 20140414
  Serious: Yes (Hospitalization, Other)
  Sender: FDA-Public Use
  Company Number: FR-JNJFOC-20130610444

PATIENT
  Age: 51 Year
  Sex: Male

DRUGS (9)
  1. REMICADE [Suspect]
     Indication: PSORIASIS
     Route: 042
     Dates: start: 2005, end: 201301
  2. METHOTREXATE [Suspect]
     Indication: PSORIASIS
     Route: 042
     Dates: start: 2005, end: 201301
  3. NEORAL [Suspect]
     Indication: PSORIASIS
     Route: 042
     Dates: start: 1998, end: 2004
  4. EFFIENT [Concomitant]
     Route: 065
  5. INEXIUM [Concomitant]
     Route: 065
  6. KARDEGIC [Concomitant]
     Route: 065
  7. SPECIAFOLDINE [Concomitant]
     Route: 065
  8. TAHOR [Concomitant]
     Route: 065
  9. ROCEPHIN [Concomitant]
     Route: 065

REACTIONS (2)
  - Lung adenocarcinoma metastatic [Not Recovered/Not Resolved]
  - Psoriasis [Unknown]
